FAERS Safety Report 7650121-5 (Version None)
Quarter: 2011Q3

REPORT INFORMATION
  Report Type: 
  Country: None (occurrence: None)
  Receive Date: 20110802
  Receipt Date: 20110721
  Transmission Date: 20111222
  Serious: Yes (Hospitalization, Other)
  Sender: FDA-Public Use
  Company Number: US-ROCHE-735906

PATIENT
  Sex: Male
  Weight: 113.4 kg

DRUGS (1)
  1. ACCUTANE [Suspect]
     Indication: ACNE
     Route: 065
     Dates: start: 19850101, end: 19881231

REACTIONS (12)
  - NAUSEA [None]
  - COLITIS ULCERATIVE [None]
  - CROHN'S DISEASE [None]
  - RECTAL ABSCESS [None]
  - ABDOMINAL PAIN [None]
  - INFLAMMATORY BOWEL DISEASE [None]
  - DEPRESSION [None]
  - ANAL STENOSIS [None]
  - RECTAL HAEMORRHAGE [None]
  - PYODERMA GANGRENOSUM [None]
  - INTESTINAL HAEMORRHAGE [None]
  - GENERALISED ANXIETY DISORDER [None]
